FAERS Safety Report 15028375 (Version 1)
Quarter: 2018Q2

REPORT INFORMATION
  Report Type: Spontaneous
  Country: US (occurrence: US)
  Receive Date: 20180619
  Receipt Date: 20180619
  Transmission Date: 20180711
  Serious: Yes (Death)
  Sender: FDA-Public Use
  Company Number: US-DRREDDYS-USA/USA/18/0100381

PATIENT
  Age: 82 Year
  Sex: Female

DRUGS (8)
  1. VINCRISTINE [Suspect]
     Active Substance: VINCRISTINE
     Indication: DOUBLE HIT LYMPHOMA
     Route: 065
  2. IFOSFAMIDE. [Suspect]
     Active Substance: IFOSFAMIDE
     Indication: DOUBLE HIT LYMPHOMA
     Route: 065
  3. DOXORUBICIN HYDROCHLORIDE LIPOSOME INJECTION 20 MG/10 ML (2 MG/ML) AND [Suspect]
     Active Substance: DOXORUBICIN HYDROCHLORIDE
     Indication: DOUBLE HIT LYMPHOMA
     Dosage: 1 CYCLE
     Route: 065
  4. CYTARABINE. [Suspect]
     Active Substance: CYTARABINE
     Indication: DOUBLE HIT LYMPHOMA
     Route: 065
  5. ETOPOSIDE. [Suspect]
     Active Substance: ETOPOSIDE
     Indication: DOUBLE HIT LYMPHOMA
     Route: 065
  6. METHOTREXATE. [Suspect]
     Active Substance: METHOTREXATE
     Indication: DOUBLE HIT LYMPHOMA
     Route: 065
  7. RITUXIMAB. [Suspect]
     Active Substance: RITUXIMAB
     Indication: DOUBLE HIT LYMPHOMA
     Route: 065
  8. CYCLOPHOSPHAMIDE. [Suspect]
     Active Substance: CYCLOPHOSPHAMIDE
     Indication: DOUBLE HIT LYMPHOMA
     Route: 065

REACTIONS (3)
  - Staphylococcal infection [Fatal]
  - Septic shock [Fatal]
  - Klebsiella bacteraemia [Fatal]
